FAERS Safety Report 9294029 (Version 1)
Quarter: 2013Q1

REPORT INFORMATION
  Report Type: Spontaneous
  Country: US (occurrence: None)
  Receive Date: 20121218
  Receipt Date: 20121218
  Transmission Date: 20140127
  Serious: Yes (Hospitalization)
  Sender: FDA-Public Use
  Company Number: 2012CT000027

PATIENT
  Age: 55 Year
  Sex: Female
  Weight: 86.18 kg

DRUGS (8)
  1. KORLYM [Suspect]
     Indication: CUSHING^S SYNDROME
     Dates: start: 20120823
  2. LISINOPRIL [Concomitant]
  3. ISOSORBIDE [Concomitant]
  4. SYNTHROID [Concomitant]
  5. FUROSEMIDE [Concomitant]
  6. POTASSIUM [Concomitant]
  7. METOPROLOL [Concomitant]
  8. CHOLECALCIFEROL [Concomitant]

REACTIONS (1)
  - Blood potassium decreased [None]
